FAERS Safety Report 15104055 (Version 1)
Quarter: 2018Q3

REPORT INFORMATION
  Report Type: Spontaneous
  Country: CN (occurrence: CN)
  Receive Date: 20180703
  Receipt Date: 20180703
  Transmission Date: 20181010
  Serious: Yes (Life-Threatening, Other)
  Sender: FDA-Public Use
  Company Number: CN-PFIZER INC-2018265005

PATIENT
  Age: 93 Year
  Sex: Male
  Weight: 75 kg

DRUGS (5)
  1. ENOXAPARIN SODIUM. [Concomitant]
     Active Substance: ENOXAPARIN SODIUM
     Indication: PAIN
  2. CELEBREX [Suspect]
     Active Substance: CELECOXIB
     Indication: ANALGESIC THERAPY
     Dosage: 200 MG, 1X/DAY
     Route: 048
     Dates: start: 20180505, end: 20180508
  3. ENOXAPARIN SODIUM. [Concomitant]
     Active Substance: ENOXAPARIN SODIUM
     Indication: THROMBOSIS
     Dosage: 2000 DF, 1X/DAY
     Route: 058
     Dates: start: 20180505, end: 20180513
  4. ASPIRIN (E.C.) [Concomitant]
     Active Substance: ASPIRIN
     Indication: COAGULOPATHY
     Dosage: 100 MG, 1X/DAY
     Route: 048
     Dates: start: 20180505, end: 20180513
  5. CELEBREX [Suspect]
     Active Substance: CELECOXIB
     Indication: PAIN
     Dosage: 200 MG, 1X/DAY
     Route: 048
     Dates: start: 20180509, end: 20180513

REACTIONS (3)
  - Shock haemorrhagic [Recovering/Resolving]
  - Gastrointestinal haemorrhage [Recovering/Resolving]
  - Cardio-respiratory arrest [Recovered/Resolved]

NARRATIVE: CASE EVENT DATE: 20180515
